FAERS Safety Report 25208381 (Version 5)
Quarter: 2025Q2

REPORT INFORMATION
  Report Type: Spontaneous
  Country: US (occurrence: US)
  Receive Date: 20250417
  Receipt Date: 20250618
  Transmission Date: 20250716
  Serious: No
  Sender: BRISTOL-MYERS SQUIBB COMPANY
  Company Number: US-BRISTOL-MYERS SQUIBB COMPANY-2025-055356

PATIENT
  Age: 89 Year
  Sex: Female
  Weight: 65.77 kg

DRUGS (3)
  1. REVLIMID [Suspect]
     Active Substance: LENALIDOMIDE
     Indication: Myelodysplastic syndrome
     Route: 048
  2. REVLIMID [Suspect]
     Active Substance: LENALIDOMIDE
     Route: 048
  3. REVLIMID [Suspect]
     Active Substance: LENALIDOMIDE
     Route: 048
     Dates: end: 20250617

REACTIONS (10)
  - White blood cell count decreased [Unknown]
  - Red blood cell count decreased [Unknown]
  - Platelet count increased [Unknown]
  - Asthenia [Not Recovered/Not Resolved]
  - Back pain [Unknown]
  - Arthralgia [Unknown]
  - Laboratory test abnormal [Not Recovered/Not Resolved]
  - Pain [Recovering/Resolving]
  - Fatigue [Recovering/Resolving]
  - Drug intolerance [Unknown]
